FAERS Safety Report 18513269 (Version 1)
Quarter: 2020Q4

REPORT INFORMATION
  Report Type: Spontaneous
  Country: US (occurrence: US)
  Receive Date: 20201118
  Receipt Date: 20201118
  Transmission Date: 20210114
  Serious: No
  Sender: FDA-Public Use
  Company Number: US-ELI_LILLY_AND_COMPANY-US202011005222

PATIENT
  Sex: Male
  Weight: 58.75 kg

DRUGS (4)
  1. HUMATROPE [Suspect]
     Active Substance: SOMATROPIN
     Indication: GROWTH HORMONE DEFICIENCY
     Dosage: 2.6 MG, EACH EVENING
     Route: 058
     Dates: start: 201807
  2. LETROZOLE. [Concomitant]
     Active Substance: LETROZOLE
     Indication: PRECOCIOUS PUBERTY
     Dosage: 2.5 MG, DAILY
     Route: 048
     Dates: start: 201705, end: 202009
  3. VITAMIN D NOS [Concomitant]
     Active Substance: VITAMIN D NOS
     Indication: PRODUCT USED FOR UNKNOWN INDICATION
     Dosage: UNK, UNKNOWN
     Route: 048
  4. CETIRIZINE HYDROCHLORIDE. [Concomitant]
     Active Substance: CETIRIZINE HYDROCHLORIDE
     Indication: PRODUCT USED FOR UNKNOWN INDICATION
     Dosage: UNK, DAILY
     Route: 065

REACTIONS (1)
  - Insulin-like growth factor increased [Unknown]
